FAERS Safety Report 4965239-5 (Version None)
Quarter: 2006Q1

REPORT INFORMATION
  Report Type: 
  Country: None (occurrence: None)
  Receive Date: 20060201
  Receipt Date: 20051215
  Transmission Date: 20060701
  Serious: No
  Sender: FDA-Public Use
  Company Number: 2005PV005890

PATIENT
  Age: 69 Year
  Sex: Female
  Weight: 92.5338 kg

DRUGS (6)
  1. BYETTA [Suspect]
     Indication: DIABETES MELLITUS NON-INSULIN-DEPENDENT
     Dosage: SEE IMAGE
     Route: 058
     Dates: start: 20050101, end: 20051116
  2. BYETTA [Suspect]
     Indication: DIABETES MELLITUS NON-INSULIN-DEPENDENT
     Dosage: SEE IMAGE
     Route: 058
     Dates: start: 20051210
  3. NOVOLIN 70/30 [Suspect]
     Dosage: SEE IMAGE
     Route: 058
     Dates: start: 20051116, end: 20051210
  4. DIABETICINE [Concomitant]
  5. GLUCOPHAGE [Concomitant]
  6. DIABETICINE [Concomitant]

REACTIONS (3)
  - DECREASED APPETITE [None]
  - DRUG INEFFECTIVE [None]
  - DYSPNOEA EXACERBATED [None]
